FAERS Safety Report 13428151 (Version 2)
Quarter: 2017Q2

REPORT INFORMATION
  Report Type: Report from Study
  Country: US (occurrence: US)
  Receive Date: 20170411
  Receipt Date: 20170417
  Transmission Date: 20170830
  Serious: Yes (Death, Hospitalization)
  Sender: FDA-Public Use
  Company Number: US-ACTELION-A-US2017-149485

PATIENT
  Age: 77 Year
  Sex: Male

DRUGS (1)
  1. OPSUMIT [Suspect]
     Active Substance: MACITENTAN
     Indication: PULMONARY ARTERIAL HYPERTENSION
     Dosage: UNK
     Route: 048
     Dates: start: 20160510, end: 20170331

REACTIONS (7)
  - Chest pain [Recovered/Resolved with Sequelae]
  - Dyspnoea [Unknown]
  - Pulmonary arterial hypertension [Fatal]
  - Condition aggravated [Fatal]
  - Wound [Unknown]
  - General physical health deterioration [Unknown]
  - Skin ulcer [Unknown]

NARRATIVE: CASE EVENT DATE: 20161201
